FAERS Safety Report 19419282 (Version 2)
Quarter: 2021Q2

REPORT INFORMATION
  Report Type: Spontaneous
  Country: JP (occurrence: JP)
  Receive Date: 20210615
  Receipt Date: 20210625
  Transmission Date: 20210717
  Serious: Yes (Hospitalization, Other)
  Sender: FDA-Public Use
  Company Number: JP-BRISTOL-MYERS SQUIBB COMPANY-BMS-2021-057004

PATIENT
  Age: 73 Year
  Sex: Male

DRUGS (2)
  1. OPDIVO [Suspect]
     Active Substance: NIVOLUMAB
     Indication: METASTATIC RENAL CELL CARCINOMA
     Dosage: UNK
     Route: 041
  2. YERVOY [Suspect]
     Active Substance: IPILIMUMAB
     Indication: METASTATIC RENAL CELL CARCINOMA
     Dosage: UNK
     Route: 041

REACTIONS (8)
  - Atrial fibrillation [Unknown]
  - Metastases to central nervous system [Unknown]
  - Brain oedema [Not Recovered/Not Resolved]
  - Polymyositis [Unknown]
  - Memory impairment [Not Recovered/Not Resolved]
  - Hemiplegia [Unknown]
  - Myocarditis [Not Recovered/Not Resolved]
  - Clonic convulsion [Unknown]
